FAERS Safety Report 21326692 (Version 1)
Quarter: 2022Q3

REPORT INFORMATION
  Report Type: Spontaneous
  Country: MA (occurrence: MA)
  Receive Date: 20220913
  Receipt Date: 20220913
  Transmission Date: 20221027
  Serious: Yes (Hospitalization, Other)
  Sender: FDA-Public Use
  Company Number: MA-SUN PHARMACEUTICAL INDUSTRIES LTD-2022R1-354301

PATIENT
  Age: 38 Year
  Sex: Female

DRUGS (2)
  1. IBUPROFEN [Suspect]
     Active Substance: IBUPROFEN
     Indication: Migraine
     Dosage: UNK
     Route: 048
  2. SUMATRIPTAN [Suspect]
     Active Substance: SUMATRIPTAN
     Indication: Migraine
     Dosage: 50 MILLIGRAM
     Route: 048

REACTIONS (2)
  - Epilepsy [Unknown]
  - Therapeutic product effect incomplete [Unknown]
